FAERS Safety Report 5266111-6 (Version None)
Quarter: 2007Q1

REPORT INFORMATION
  Report Type: 
  Country: None (occurrence: None)
  Receive Date: 20070313
  Receipt Date: 20070313
  Transmission Date: 20070707
  Serious: Yes (Hospitalization)
  Sender: FDA-Public Use
  Company Number: None

PATIENT
  Age: 58 Year
  Sex: Male
  Weight: 94 kg

DRUGS (4)
  1. ETHAMBUTOL HYDROCHLORIDE [Suspect]
     Indication: PULMONARY TUBERCULOSIS
     Dosage: 400 MG 4 TABS DAILY
     Dates: start: 20061106
  2. RIFAMPIN [Suspect]
     Dosage: 300 MG BID
     Dates: start: 20061106
  3. PYRAZINAMIDE [Suspect]
     Dosage: 500MG 4 TABS DAILY
     Dates: start: 20061106
  4. ISONIAZID [Suspect]
     Dates: start: 20061106

REACTIONS (4)
  - DEHYDRATION [None]
  - DIARRHOEA [None]
  - NAUSEA [None]
  - VOMITING [None]
